FAERS Safety Report 7055305-5 (Version None)
Quarter: 2010Q4

REPORT INFORMATION
  Report Type: 
  Country: None (occurrence: None)
  Receive Date: 20101020
  Receipt Date: 20101020
  Transmission Date: 20110411
  Serious: No
  Sender: FDA-Public Use
  Company Number: None

PATIENT
  Age: 49 Year
  Sex: Female
  Weight: 78.9259 kg

DRUGS (1)
  1. CREON [Suspect]
     Indication: PANCREATIC ENZYMES DECREASED
     Dosage: 24,000 UNITS 4 X DAY ORAL
     Route: 048
     Dates: start: 20100917

REACTIONS (3)
  - PHARYNGEAL ULCERATION [None]
  - TONGUE DISORDER [None]
  - TONGUE ULCERATION [None]
